FAERS Safety Report 26198373 (Version 1)
Quarter: 2025Q4

REPORT INFORMATION
  Report Type: Spontaneous
  Country: CA (occurrence: CA)
  Receive Date: 20251224
  Receipt Date: 20251224
  Transmission Date: 20260118
  Serious: Yes (Death, Life-Threatening, Hospitalization, Disabling, Other)
  Sender: SANDOZ
  Company Number: CA-HALEON-2279279

PATIENT
  Age: 44 Year
  Sex: Female

DRUGS (429)
  1. RITUXIMAB [Suspect]
     Active Substance: RITUXIMAB
     Indication: Product used for unknown indication
     Dosage: UNK
  2. RITUXIMAB [Suspect]
     Active Substance: RITUXIMAB
     Indication: Rheumatoid arthritis
     Dosage: UNK
  3. RITUXIMAB [Suspect]
     Active Substance: RITUXIMAB
     Dosage: UNK
  4. RITUXIMAB [Suspect]
     Active Substance: RITUXIMAB
     Dosage: UNK
  5. RITUXIMAB [Suspect]
     Active Substance: RITUXIMAB
     Dosage: UNK
  6. RITUXIMAB [Suspect]
     Active Substance: RITUXIMAB
     Dosage: UNK
  7. RITUXIMAB [Suspect]
     Active Substance: RITUXIMAB
     Dosage: UNK
  8. RITUXIMAB [Suspect]
     Active Substance: RITUXIMAB
     Dosage: UNK
  9. RITUXIMAB [Suspect]
     Active Substance: RITUXIMAB
     Dosage: UNK
  10. RITUXIMAB [Suspect]
     Active Substance: RITUXIMAB
     Dosage: UNK
  11. RITUXIMAB [Suspect]
     Active Substance: RITUXIMAB
     Dosage: UNK
  12. RITUXIMAB [Suspect]
     Active Substance: RITUXIMAB
     Dosage: 365 MG
  13. RITUXIMAB [Suspect]
     Active Substance: RITUXIMAB
     Dosage: 365 MG
  14. RITUXIMAB [Suspect]
     Active Substance: RITUXIMAB
     Dosage: 365 MG
  15. HYRIMOZ [Suspect]
     Active Substance: ADALIMUMAB-ADAZ
     Indication: Rheumatoid arthritis
     Dosage: 1 MG
  16. HYRIMOZ [Suspect]
     Active Substance: ADALIMUMAB-ADAZ
     Indication: Psoriatic arthropathy
     Dosage: 40 MG
  17. HYRIMOZ [Suspect]
     Active Substance: ADALIMUMAB-ADAZ
     Indication: Product used for unknown indication
     Dosage: 3011.2 MG
  18. HYRIMOZ [Suspect]
     Active Substance: ADALIMUMAB-ADAZ
     Dosage: UNK
  19. HYRIMOZ [Suspect]
     Active Substance: ADALIMUMAB-ADAZ
     Dosage: 3011.2 MG
  20. HYRIMOZ [Suspect]
     Active Substance: ADALIMUMAB-ADAZ
     Dosage: 40 MG
  21. HYRIMOZ [Suspect]
     Active Substance: ADALIMUMAB-ADAZ
     Dosage: 40 MG
  22. HYRIMOZ [Suspect]
     Active Substance: ADALIMUMAB-ADAZ
     Dosage: 40 MG
  23. ALENDRONIC ACID [Suspect]
     Active Substance: ALENDRONIC ACID
     Indication: Rheumatoid arthritis
     Dosage: UNK  (ALENDRONATE SODIUM)
  24. ALENDRONIC ACID [Suspect]
     Active Substance: ALENDRONIC ACID
     Dosage: 1 MG
  25. ALENDRONIC ACID [Suspect]
     Active Substance: ALENDRONIC ACID
     Dosage: UNK
  26. ALENDRONIC ACID [Suspect]
     Active Substance: ALENDRONIC ACID
     Dosage: UNK
  27. ALENDRONIC ACID [Suspect]
     Active Substance: ALENDRONIC ACID
     Dosage: UNK
  28. ALENDRONIC ACID [Suspect]
     Active Substance: ALENDRONIC ACID
     Dosage: UNK
  29. VOLTAREN [Suspect]
     Active Substance: DICLOFENAC SODIUM
     Indication: Product used for unknown indication
     Dosage: UNK
  30. VOLTAREN [Suspect]
     Active Substance: DICLOFENAC SODIUM
     Dosage: UNK
  31. VOLTAREN [Suspect]
     Active Substance: DICLOFENAC SODIUM
     Dosage: 50 MG, QD
  32. VOLTAREN [Suspect]
     Active Substance: DICLOFENAC SODIUM
     Dosage: 50 MG, QD
  33. VOLTAREN [Suspect]
     Active Substance: DICLOFENAC SODIUM
     Dosage: 50 MG, QD
  34. VOLTAREN [Suspect]
     Active Substance: DICLOFENAC SODIUM
     Dosage: 50 MG, QD
  35. VOLTAREN [Suspect]
     Active Substance: DICLOFENAC SODIUM
     Dosage: 50 MG
  36. VOLTAREN [Suspect]
     Active Substance: DICLOFENAC SODIUM
     Dosage: 50 MG
     Route: 047
  37. VOLTAREN [Suspect]
     Active Substance: DICLOFENAC SODIUM
     Dosage: UNK
     Route: 047
  38. VOLTAREN [Suspect]
     Active Substance: DICLOFENAC SODIUM
     Dosage: 50 MG
     Route: 047
  39. VOLTAREN [Suspect]
     Active Substance: DICLOFENAC SODIUM
     Dosage: UNK
  40. VOLTAREN [Suspect]
     Active Substance: DICLOFENAC SODIUM
     Dosage: 100 MG
  41. ERELZI [Suspect]
     Active Substance: ETANERCEPT-SZZS
     Indication: Rheumatoid arthritis
     Dosage: 50 MG, QW
  42. ERELZI [Suspect]
     Active Substance: ETANERCEPT-SZZS
     Dosage: UNK
  43. LEFLUNOMIDE [Suspect]
     Active Substance: LEFLUNOMIDE
     Indication: Rheumatoid arthritis
     Dosage: UNK
  44. LEFLUNOMIDE [Suspect]
     Active Substance: LEFLUNOMIDE
     Dosage: 1 UNK
  45. LEFLUNOMIDE [Suspect]
     Active Substance: LEFLUNOMIDE
     Dosage: 20 MG
  46. LEFLUNOMIDE [Suspect]
     Active Substance: LEFLUNOMIDE
     Indication: Rheumatoid arthritis
     Dosage: UNK
  47. MOXIFLOXACIN HYDROCHLORIDE [Suspect]
     Active Substance: MOXIFLOXACIN HYDROCHLORIDE
     Indication: Product used for unknown indication
     Dosage: UNK (DOSE FORM: SOLUTION  OPHTHALMIC, ROA: SUBCUTANEOUS)
  48. MYCOPHENOLATE MOFETIL [Suspect]
     Active Substance: MYCOPHENOLATE MOFETIL
     Indication: Rheumatoid arthritis
     Dosage: UNK
  49. PANTOPRAZOLE SODIUM [Suspect]
     Active Substance: PANTOPRAZOLE SODIUM
     Indication: Product used for unknown indication
     Dosage: UNK
  50. PANTOPRAZOLE SODIUM [Suspect]
     Active Substance: PANTOPRAZOLE SODIUM
     Dosage: UNK  (TABLET (DELAYED- RELEASE))
  51. PREGABALIN [Suspect]
     Active Substance: PREGABALIN
     Indication: Product used for unknown indication
     Dosage: UNK
  52. OXYCODONE [Suspect]
     Active Substance: OXYCODONE
     Indication: Product used for unknown indication
     Dosage: UNK
  53. OXYCODONE [Suspect]
     Active Substance: OXYCODONE
     Dosage: UNK
  54. OXYCODONE [Suspect]
     Active Substance: OXYCODONE
     Dosage: UNK
  55. DICLOFENAC SODIUM [Suspect]
     Active Substance: DICLOFENAC SODIUM
     Indication: Systemic lupus erythematosus
     Dosage: UNK
  56. DICLOFENAC SODIUM [Suspect]
     Active Substance: DICLOFENAC SODIUM
     Indication: Synovitis
     Dosage: 50 MG
  57. DICLOFENAC SODIUM [Suspect]
     Active Substance: DICLOFENAC SODIUM
     Indication: Rheumatoid arthritis
     Dosage: UNK
  58. DICLOFENAC SODIUM [Suspect]
     Active Substance: DICLOFENAC SODIUM
     Indication: Psoriatic arthropathy
     Dosage: UNK
     Route: 047
  59. DICLOFENAC SODIUM [Suspect]
     Active Substance: DICLOFENAC SODIUM
     Indication: Pemphigus
  60. DICLOFENAC SODIUM [Suspect]
     Active Substance: DICLOFENAC SODIUM
     Indication: Inflammation
  61. DICLOFENAC SODIUM [Suspect]
     Active Substance: DICLOFENAC SODIUM
     Indication: Bursitis
  62. OXYCODONE HYDROCHLORIDE [Suspect]
     Active Substance: OXYCODONE HYDROCHLORIDE
     Indication: Product used for unknown indication
     Dosage: UNK
  63. OXYCODONE HYDROCHLORIDE [Suspect]
     Active Substance: OXYCODONE HYDROCHLORIDE
     Dosage: UNK
  64. VITAMIN C [Suspect]
     Active Substance: ASCORBIC ACID
     Indication: Product used for unknown indication
     Dosage: 1000 MG
  65. VITAMIN C [Suspect]
     Active Substance: ASCORBIC ACID
     Dosage: UNK
  66. VITAMIN C [Suspect]
     Active Substance: ASCORBIC ACID
     Dosage: UNK
  67. DILTIAZEM [Suspect]
     Active Substance: DILTIAZEM
     Indication: Product used for unknown indication
     Dosage: UNK
  68. DILTIAZEM [Suspect]
     Active Substance: DILTIAZEM
     Dosage: 40 MG
  69. DILTIAZEM [Suspect]
     Active Substance: DILTIAZEM
     Dosage: UNK
  70. DILTIAZEM [Suspect]
     Active Substance: DILTIAZEM
     Dosage: UNK
  71. HYDROCORTISONE [Suspect]
     Active Substance: HYDROCORTISONE
     Indication: Product used for unknown indication
     Dosage: UNK
  72. APREMILAST [Suspect]
     Active Substance: APREMILAST
     Indication: Product used for unknown indication
     Dosage: 5 MG
  73. APREMILAST [Suspect]
     Active Substance: APREMILAST
     Dosage: 5 MG
  74. APREMILAST [Suspect]
     Active Substance: APREMILAST
     Dosage: 5 MG
  75. APREMILAST [Suspect]
     Active Substance: APREMILAST
     Dosage: 3 MG
  76. HYDROCORTISONE [Suspect]
     Active Substance: HYDROCORTISONE
     Indication: Product used for unknown indication
     Dosage: 25 MG
  77. HYDROCORTISONE [Suspect]
     Active Substance: HYDROCORTISONE
     Dosage: 25 MG
  78. HYDROCORTISONE [Suspect]
     Active Substance: HYDROCORTISONE
     Dosage: 25 MG
  79. HYDROCORTISONE [Suspect]
     Active Substance: HYDROCORTISONE
     Dosage: 25 MG
  80. HYDROCORTISONE [Suspect]
     Active Substance: HYDROCORTISONE
     Dosage: 25 MG
  81. HYDROCORTISONE [Suspect]
     Active Substance: HYDROCORTISONE
     Dosage: 25 MG
  82. HYDROCORTISONE [Suspect]
     Active Substance: HYDROCORTISONE
     Dosage: 25 MG
  83. HYDROCORTISONE [Suspect]
     Active Substance: HYDROCORTISONE
     Dosage: 25 MG
  84. HYDROCORTISONE [Suspect]
     Active Substance: HYDROCORTISONE
     Dosage: 5 MG
  85. HYDROCORTISONE [Suspect]
     Active Substance: HYDROCORTISONE
     Dosage: 50 MG
  86. HYDROCORTISONE [Suspect]
     Active Substance: HYDROCORTISONE
     Dosage: 250 MG
  87. HYDROCORTISONE [Suspect]
     Active Substance: HYDROCORTISONE
     Dosage: 25 MG, QW
  88. HYDROCORTISONE [Suspect]
     Active Substance: HYDROCORTISONE
     Dosage: UNK
  89. HYDROCORTISONE [Suspect]
     Active Substance: HYDROCORTISONE
     Dosage: UNK (ROA: TOPICAL)
  90. HYDROCORTISONE [Suspect]
     Active Substance: HYDROCORTISONE
     Dosage: 25 MG
  91. HYDROCORTISONE [Suspect]
     Active Substance: HYDROCORTISONE
     Dosage: 25 MG
  92. HYDROCORTISONE [Suspect]
     Active Substance: HYDROCORTISONE
     Dosage: 25 MG
  93. HYDROCORTISONE [Suspect]
     Active Substance: HYDROCORTISONE
     Dosage: UNK
  94. CELECOXIB [Suspect]
     Active Substance: CELECOXIB
     Indication: Product used for unknown indication
     Dosage: 2 DF, QD
  95. CELECOXIB [Suspect]
     Active Substance: CELECOXIB
     Dosage: 1 DF, QD
  96. CELECOXIB [Suspect]
     Active Substance: CELECOXIB
     Dosage: UNK
  97. CELECOXIB [Suspect]
     Active Substance: CELECOXIB
     Dosage: 1 DF
  98. CELECOXIB [Suspect]
     Active Substance: CELECOXIB
     Dosage: 1 DF, QD
  99. METHOTREXATE [Suspect]
     Active Substance: METHOTREXATE
     Indication: Rheumatoid arthritis
     Dosage: SOLUTION FOR INJECTION
  100. METHOTREXATE [Suspect]
     Active Substance: METHOTREXATE
     Dosage: SOLUTION FOR INJECTION
  101. METHOTREXATE [Suspect]
     Active Substance: METHOTREXATE
     Dosage: SOLUTION FOR INJECTION
  102. METHOTREXATE [Suspect]
     Active Substance: METHOTREXATE
     Dosage: SOLUTION FOR INJECTION
  103. METHOTREXATE [Suspect]
     Active Substance: METHOTREXATE
     Dosage: SOLUTION FOR INJECTION
  104. METHOTREXATE [Suspect]
     Active Substance: METHOTREXATE
     Dosage: SOLUTION FOR INJECTION
  105. METHOTREXATE [Suspect]
     Active Substance: METHOTREXATE
     Dosage: SOLUTION FOR INJECTION
  106. METHOTREXATE [Suspect]
     Active Substance: METHOTREXATE
     Dosage: SOLUTION FOR INJECTION
  107. METHOTREXATE [Suspect]
     Active Substance: METHOTREXATE
     Dosage: SOLUTION FOR INJECTION
  108. METHOTREXATE [Suspect]
     Active Substance: METHOTREXATE
     Dosage: 2 DOSAGE FORM, QD, SOLUTION FOR INJECTION
  109. METHOTREXATE [Suspect]
     Active Substance: METHOTREXATE
     Dosage: 15 MG, SOLUTION FOR INJECTION
  110. METHOTREXATE [Suspect]
     Active Substance: METHOTREXATE
     Dosage: 15 MG, SOLUTION FOR INJECTION
  111. METHOTREXATE [Suspect]
     Active Substance: METHOTREXATE
     Dosage: 25 DF
  112. METHOTREXATE [Suspect]
     Active Substance: METHOTREXATE
     Dosage: 25 MG
  113. METHOTREXATE [Suspect]
     Active Substance: METHOTREXATE
     Dosage: 25 MG, QD
  114. METHOTREXATE [Suspect]
     Active Substance: METHOTREXATE
     Dosage: 20 MG, QD
  115. METHOTREXATE [Suspect]
     Active Substance: METHOTREXATE
     Dosage: 25 MG
  116. PREDNISONE [Suspect]
     Active Substance: PREDNISONE
     Indication: Bursitis
     Dosage: 1 MG
  117. PREDNISONE [Suspect]
     Active Substance: PREDNISONE
     Indication: Inflammation
     Dosage: 5 MG
  118. PREDNISONE [Suspect]
     Active Substance: PREDNISONE
     Indication: Rheumatoid arthritis
     Dosage: UNK
  119. PREDNISONE [Suspect]
     Active Substance: PREDNISONE
     Indication: Systemic lupus erythematosus
     Dosage: UNK
  120. PREDNISONE [Suspect]
     Active Substance: PREDNISONE
     Indication: Synovitis
     Dosage: 7.5 MG
  121. PREDNISONE [Suspect]
     Active Substance: PREDNISONE
     Indication: Pemphigus
     Dosage: 5 MG
  122. PREDNISONE [Suspect]
     Active Substance: PREDNISONE
     Indication: Psoriatic arthropathy
     Dosage: 40 MG
  123. PREDNISONE [Suspect]
     Active Substance: PREDNISONE
     Dosage: UNK
  124. APREPITANT [Suspect]
     Active Substance: APREPITANT
     Indication: Product used for unknown indication
     Dosage: 3 MG
  125. APREPITANT [Suspect]
     Active Substance: APREPITANT
     Dosage: 5 MG
  126. APREPITANT [Suspect]
     Active Substance: APREPITANT
     Dosage: 5 MG
  127. APREPITANT [Suspect]
     Active Substance: APREPITANT
     Dosage: UNK
  128. TRIAMCINOLONE [Suspect]
     Active Substance: TRIAMCINOLONE
     Indication: Rheumatoid arthritis
     Dosage: UNK (TRIAMCINOLONE ACETONIDE, DOSE  FORM: SUSPENSION INTRA-  ARTICULAR)
  129. COSENTYX [Suspect]
     Active Substance: SECUKINUMAB
     Indication: Rheumatoid arthritis
     Dosage: UNK
  130. COSENTYX [Suspect]
     Active Substance: SECUKINUMAB
     Dosage: UNK
  131. ARAVA [Suspect]
     Active Substance: LEFLUNOMIDE
     Indication: Product used for unknown indication
     Dosage: UNK
  132. ARAVA [Suspect]
     Active Substance: LEFLUNOMIDE
     Dosage: UNK
  133. ARAVA [Suspect]
     Active Substance: LEFLUNOMIDE
     Dosage: UNK
  134. ARAVA [Suspect]
     Active Substance: LEFLUNOMIDE
     Dosage: UNK
  135. ARAVA [Suspect]
     Active Substance: LEFLUNOMIDE
     Dosage: UNK
  136. ARAVA [Suspect]
     Active Substance: LEFLUNOMIDE
     Dosage: UNK
  137. ARAVA [Suspect]
     Active Substance: LEFLUNOMIDE
     Dosage: 20 MG
  138. ARAVA [Suspect]
     Active Substance: LEFLUNOMIDE
     Dosage: 20 MG
  139. ARAVA [Suspect]
     Active Substance: LEFLUNOMIDE
     Dosage: 20 MG
  140. ARAVA [Suspect]
     Active Substance: LEFLUNOMIDE
     Dosage: 20 MG
  141. PREDNISOLONE [Suspect]
     Active Substance: PREDNISOLONE
     Indication: Condition aggravated
  142. PREDNISOLONE [Suspect]
     Active Substance: PREDNISOLONE
     Indication: Systemic lupus erythematosus
     Dosage: 1 MG
  143. PREDNISOLONE [Suspect]
     Active Substance: PREDNISOLONE
     Indication: Synovitis
     Dosage: 5 MG
  144. PREDNISOLONE [Suspect]
     Active Substance: PREDNISOLONE
     Indication: Product used for unknown indication
     Dosage: UNK
  145. PREDNISOLONE [Suspect]
     Active Substance: PREDNISOLONE
     Indication: Psoriatic arthropathy
     Dosage: 10 MG
  146. PREDNISOLONE [Suspect]
     Active Substance: PREDNISOLONE
     Indication: Rheumatoid arthritis
     Dosage: 40 MG
  147. PREDNISOLONE [Suspect]
     Active Substance: PREDNISOLONE
     Indication: Pemphigus
     Dosage: 7.5 MG
  148. PREDNISOLONE [Suspect]
     Active Substance: PREDNISOLONE
     Dosage: 200 MG
  149. PREDNISOLONE [Suspect]
     Active Substance: PREDNISOLONE
     Dosage: UNK
  150. PREDNISOLONE [Suspect]
     Active Substance: PREDNISOLONE
     Dosage: 7.5 MG, QD
  151. ASACOL [Suspect]
     Active Substance: MESALAMINE
     Indication: Product used for unknown indication
     Dosage: UNK
  152. BORAGE OIL [Suspect]
     Active Substance: BORAGE OIL
     Indication: Product used for unknown indication
     Dosage: UNK
  153. CALCIUM GLUCONATE [Suspect]
     Active Substance: CALCIUM GLUCONATE
     Indication: Product used for unknown indication
     Dosage: UNK
  154. CERTOLIZUMAB PEGOL [Suspect]
     Active Substance: CERTOLIZUMAB PEGOL
     Indication: Product used for unknown indication
     Dosage: UNK
  155. CETIRIZINE [Suspect]
     Active Substance: CETIRIZINE HYDROCHLORIDE
     Indication: Rheumatoid arthritis
     Dosage: 10 MG
  156. CETIRIZINE [Suspect]
     Active Substance: CETIRIZINE HYDROCHLORIDE
     Dosage: 20 MG
  157. CETIRIZINE [Suspect]
     Active Substance: CETIRIZINE HYDROCHLORIDE
     Dosage: 25 MG
  158. CETIRIZINE [Suspect]
     Active Substance: CETIRIZINE HYDROCHLORIDE
     Dosage: 25 MG
  159. CETIRIZINE [Suspect]
     Active Substance: CETIRIZINE HYDROCHLORIDE
     Dosage: 10 MG
  160. CETIRIZINE [Suspect]
     Active Substance: CETIRIZINE HYDROCHLORIDE
     Dosage: 10 MG, QD
  161. CETIRIZINE [Suspect]
     Active Substance: CETIRIZINE HYDROCHLORIDE
     Dosage: 25 MG
  162. CETIRIZINE HYDROCHLORIDE [Suspect]
     Active Substance: CETIRIZINE HYDROCHLORIDE
     Indication: Rheumatoid arthritis
     Dosage: UNK
  163. CETIRIZINE HYDROCHLORIDE [Suspect]
     Active Substance: CETIRIZINE HYDROCHLORIDE
     Dosage: UNK
  164. CETIRIZINE HYDROCHLORIDE [Suspect]
     Active Substance: CETIRIZINE HYDROCHLORIDE
     Dosage: UNK
  165. CETIRIZINE HYDROCHLORIDE [Suspect]
     Active Substance: CETIRIZINE HYDROCHLORIDE
     Dosage: UNK
  166. CETIRIZINE HYDROCHLORIDE [Suspect]
     Active Substance: CETIRIZINE HYDROCHLORIDE
     Dosage: UNK
  167. CETIRIZINE HYDROCHLORIDE [Suspect]
     Active Substance: CETIRIZINE HYDROCHLORIDE
     Dosage: UNK
  168. CETIRIZINE HYDROCHLORIDE [Suspect]
     Active Substance: CETIRIZINE HYDROCHLORIDE
     Dosage: UNK
  169. CETIRIZINE HYDROCHLORIDE [Suspect]
     Active Substance: CETIRIZINE HYDROCHLORIDE
     Dosage: 25 MG
  170. CETIRIZINE HYDROCHLORIDE [Suspect]
     Active Substance: CETIRIZINE HYDROCHLORIDE
     Dosage: 25 MG
  171. CETIRIZINE HYDROCHLORIDE [Suspect]
     Active Substance: CETIRIZINE HYDROCHLORIDE
     Dosage: 25 MG
  172. CETIRIZINE HYDROCHLORIDE [Suspect]
     Active Substance: CETIRIZINE HYDROCHLORIDE
     Dosage: 25 G
  173. CETIRIZINE HYDROCHLORIDE [Suspect]
     Active Substance: CETIRIZINE HYDROCHLORIDE
     Dosage: 25 MG
  174. CETIRIZINE HYDROCHLORIDE [Suspect]
     Active Substance: CETIRIZINE HYDROCHLORIDE
     Dosage: 25 MG
  175. CETIRIZINE HYDROCHLORIDE [Suspect]
     Active Substance: CETIRIZINE HYDROCHLORIDE
     Dosage: 10 MG
  176. CETIRIZINE HYDROCHLORIDE [Suspect]
     Active Substance: CETIRIZINE HYDROCHLORIDE
     Dosage: 10 MG
  177. CETIRIZINE HYDROCHLORIDE [Suspect]
     Active Substance: CETIRIZINE HYDROCHLORIDE
     Dosage: 10 MG
  178. CETIRIZINE HYDROCHLORIDE [Suspect]
     Active Substance: CETIRIZINE HYDROCHLORIDE
     Dosage: 10 MG
  179. CETIRIZINE HYDROCHLORIDE [Suspect]
     Active Substance: CETIRIZINE HYDROCHLORIDE
     Dosage: 10 MG
  180. CETIRIZINE HYDROCHLORIDE [Suspect]
     Active Substance: CETIRIZINE HYDROCHLORIDE
     Dosage: 10 MG, QD
  181. CETIRIZINE HYDROCHLORIDE [Suspect]
     Active Substance: CETIRIZINE HYDROCHLORIDE
     Dosage: 10 MG, QD
  182. CETIRIZINE HYDROCHLORIDE [Suspect]
     Active Substance: CETIRIZINE HYDROCHLORIDE
     Dosage: 10 MG, QD
  183. CETIRIZINE HYDROCHLORIDE [Suspect]
     Active Substance: CETIRIZINE HYDROCHLORIDE
     Dosage: 10 MG, QD
  184. CETIRIZINE HYDROCHLORIDE [Suspect]
     Active Substance: CETIRIZINE HYDROCHLORIDE
     Dosage: 10 MG, QD
  185. CETIRIZINE HYDROCHLORIDE [Suspect]
     Active Substance: CETIRIZINE HYDROCHLORIDE
     Dosage: 10 MG, QD
  186. CETIRIZINE HYDROCHLORIDE [Suspect]
     Active Substance: CETIRIZINE HYDROCHLORIDE
     Dosage: 25 MG
  187. CETIRIZINE HYDROCHLORIDE [Suspect]
     Active Substance: CETIRIZINE HYDROCHLORIDE
     Dosage: 25 MG
  188. CETIRIZINE HYDROCHLORIDE [Suspect]
     Active Substance: CETIRIZINE HYDROCHLORIDE
     Dosage: 25 MG
  189. ENBREL [Suspect]
     Active Substance: ETANERCEPT
     Indication: Psoriatic arthropathy
     Dosage: 20 MG
  190. ENBREL [Suspect]
     Active Substance: ETANERCEPT
     Indication: Rheumatoid arthritis
     Dosage: 50 MG
  191. ENBREL [Suspect]
     Active Substance: ETANERCEPT
     Dosage: 90 MG
  192. ENBREL [Suspect]
     Active Substance: ETANERCEPT
     Dosage: 20 MG, QD
  193. ENBREL [Suspect]
     Active Substance: ETANERCEPT
     Dosage: 20 MG, QW
  194. ENBREL [Suspect]
     Active Substance: ETANERCEPT
     Dosage: 50 MG, QW
  195. CETRIMIDE [Suspect]
     Active Substance: CETRIMIDE
     Indication: Product used for unknown indication
  196. CETRIMIDE [Suspect]
     Active Substance: CETRIMIDE
     Dosage: 10 MG
  197. CETRIMIDE [Suspect]
     Active Substance: CETRIMIDE
     Dosage: 10 MG
  198. CETRIMIDE [Suspect]
     Active Substance: CETRIMIDE
     Dosage: 25 MG
  199. CETRIMIDE [Suspect]
     Active Substance: CETRIMIDE
     Dosage: 25 MG
  200. CETRIMIDE [Suspect]
     Active Substance: CETRIMIDE
     Dosage: 10 MG
  201. CETRIMIDE [Suspect]
     Active Substance: CETRIMIDE
     Dosage: 10 MG, QD
  202. CHLORAPREP [Suspect]
     Active Substance: CHLORHEXIDINE GLUCONATE\ISOPROPYL ALCOHOL
     Indication: Product used for unknown indication
     Dosage: UNK (ROA: TOPICAL)
  203. CHLORHEXIDINE [Suspect]
     Active Substance: CHLORHEXIDINE
     Indication: Product used for unknown indication
     Dosage: UNK
  204. CHLORHEXIDINE [Suspect]
     Active Substance: CHLORHEXIDINE
     Dosage: UNK
  205. CHLORHEXIDINE [Suspect]
     Active Substance: CHLORHEXIDINE
     Dosage: UNK (ROA: TOPICAL)
  206. CHLORHEXIDINE [Suspect]
     Active Substance: CHLORHEXIDINE
     Dosage: UNK
  207. CHOLECALCIFEROL [Suspect]
     Active Substance: CHOLECALCIFEROL
     Indication: Product used for unknown indication
  208. CIMZIA [Suspect]
     Active Substance: CERTOLIZUMAB PEGOL
     Indication: Psoriatic arthropathy
  209. CIMZIA [Suspect]
     Active Substance: CERTOLIZUMAB PEGOL
     Indication: Rheumatoid arthritis
     Dosage: UNK
  210. CIMZIA [Suspect]
     Active Substance: CERTOLIZUMAB PEGOL
     Indication: Psoriasis
     Dosage: UNK
  211. CIMZIA [Suspect]
     Active Substance: CERTOLIZUMAB PEGOL
     Dosage: 10 MG
  212. CIMZIA [Suspect]
     Active Substance: CERTOLIZUMAB PEGOL
     Dosage: 200 MG
  213. CIMZIA [Suspect]
     Active Substance: CERTOLIZUMAB PEGOL
     Dosage: 400 MG
  214. CIMZIA [Suspect]
     Active Substance: CERTOLIZUMAB PEGOL
     Dosage: 1 DF
  215. DESOXIMETASONE [Suspect]
     Active Substance: DESOXIMETASONE
     Indication: Rheumatoid arthritis
     Dosage: UNK
  216. DESOXIMETASONE [Suspect]
     Active Substance: DESOXIMETASONE
     Dosage: 25 MG
  217. DESOXIMETASONE [Suspect]
     Active Substance: DESOXIMETASONE
     Dosage: UNK
  218. DESOXIMETASONE [Suspect]
     Active Substance: DESOXIMETASONE
     Dosage: UNK
  219. DESOXIMETASONE [Suspect]
     Active Substance: DESOXIMETASONE
     Dosage: UNK
  220. DESOXIMETASONE [Suspect]
     Active Substance: DESOXIMETASONE
     Dosage: 25 MG
  221. DESOXIMETASONE [Suspect]
     Active Substance: DESOXIMETASONE
     Dosage: 5 MG
  222. DESOXIMETASONE [Suspect]
     Active Substance: DESOXIMETASONE
     Dosage: UNK
  223. DOXYCYCLINE HYCLATE [Suspect]
     Active Substance: DOXYCYCLINE HYCLATE
     Indication: Product used for unknown indication
     Dosage: 40 MG
  224. ENTYVIO [Suspect]
     Active Substance: VEDOLIZUMAB
     Indication: Product used for unknown indication
     Dosage: UNK
  225. FLUMETHASONE PIVALATE [Suspect]
     Active Substance: FLUMETHASONE PIVALATE
     Indication: Rheumatoid arthritis
     Dosage: 0.5 MG
  226. FLUMETHASONE PIVALATE [Suspect]
     Active Substance: FLUMETHASONE PIVALATE
     Dosage: 25 MG
  227. FLUMETHASONE PIVALATE [Suspect]
     Active Substance: FLUMETHASONE PIVALATE
     Dosage: 50 MG
  228. FLUMETHASONE PIVALATE [Suspect]
     Active Substance: FLUMETHASONE PIVALATE
     Dosage: 50 MG
  229. FLUMETHASONE PIVALATE [Suspect]
     Active Substance: FLUMETHASONE PIVALATE
     Dosage: 1 MG, QD
  230. FLUMETHASONE PIVALATE [Suspect]
     Active Substance: FLUMETHASONE PIVALATE
     Dosage: 10 MG, QD
  231. FLUMETHASONE PIVALATE [Suspect]
     Active Substance: FLUMETHASONE PIVALATE
     Dosage: 5 MG, QD
  232. FLUMETHASONE PIVALATE [Suspect]
     Active Substance: FLUMETHASONE PIVALATE
     Dosage: 0.5 MG
  233. FLUMETHASONE PIVALATE [Suspect]
     Active Substance: FLUMETHASONE PIVALATE
     Dosage: 1 MG
  234. FLUMETHASONE PIVALATE [Suspect]
     Active Substance: FLUMETHASONE PIVALATE
     Dosage: 3 MG
  235. FLUMETHASONE PIVALATE [Suspect]
     Active Substance: FLUMETHASONE PIVALATE
     Dosage: 5 MG
  236. FLUMETHASONE PIVALATE [Suspect]
     Active Substance: FLUMETHASONE PIVALATE
     Dosage: 15 MG
  237. FLUMETHASONE PIVALATE [Suspect]
     Active Substance: FLUMETHASONE PIVALATE
     Dosage: 1 MG
  238. FLUMETHASONE PIVALATE [Suspect]
     Active Substance: FLUMETHASONE PIVALATE
     Dosage: 25 MG
  239. FLUMETHASONE PIVALATE [Suspect]
     Active Substance: FLUMETHASONE PIVALATE
     Dosage: 500 MG
  240. FLUMETHASONE PIVALATE [Suspect]
     Active Substance: FLUMETHASONE PIVALATE
     Dosage: UNK
  241. FOLIC ACID [Suspect]
     Active Substance: FOLIC ACID
     Indication: Rheumatoid arthritis
     Dosage: UNK
  242. FOLIC ACID [Suspect]
     Active Substance: FOLIC ACID
     Dosage: 0.5 MG
  243. FOLIC ACID [Suspect]
     Active Substance: FOLIC ACID
     Dosage: 25 MG
  244. FOLIC ACID [Suspect]
     Active Substance: FOLIC ACID
     Dosage: 50 MG
  245. FOLIC ACID [Suspect]
     Active Substance: FOLIC ACID
     Dosage: 50 MG
  246. FOLIC ACID [Suspect]
     Active Substance: FOLIC ACID
     Dosage: 0.5 MG
  247. FOLIC ACID [Suspect]
     Active Substance: FOLIC ACID
     Dosage: 1 MG
  248. FOLIC ACID [Suspect]
     Active Substance: FOLIC ACID
     Dosage: 15 MG
  249. FOLIC ACID [Suspect]
     Active Substance: FOLIC ACID
     Dosage: 500 MG
  250. FOLIC ACID [Suspect]
     Active Substance: FOLIC ACID
     Dosage: 5 MG
  251. FOLIC ACID [Suspect]
     Active Substance: FOLIC ACID
     Dosage: 3 MG
  252. FOLIC ACID [Suspect]
     Active Substance: FOLIC ACID
     Dosage: 25 MG
  253. FOLIC ACID [Suspect]
     Active Substance: FOLIC ACID
     Dosage: 1 MG
  254. FOLIC ACID [Suspect]
     Active Substance: FOLIC ACID
     Dosage: 1 MG, QD
  255. FOLIC ACID [Suspect]
     Active Substance: FOLIC ACID
     Dosage: 5 MG, QD
  256. FOLIC ACID [Suspect]
     Active Substance: FOLIC ACID
     Dosage: 10 MG, QD
  257. FOLIC ACID [Suspect]
     Active Substance: FOLIC ACID
     Dosage: 4 MG
  258. FOSAMAX [Suspect]
     Active Substance: ALENDRONATE SODIUM
     Indication: Product used for unknown indication
     Dosage: UNK
  259. GOLIMUMAB [Suspect]
     Active Substance: GOLIMUMAB
     Indication: Product used for unknown indication
     Dosage: UNK
  260. GOLIMUMAB [Suspect]
     Active Substance: GOLIMUMAB
     Dosage: UNK
  261. GOLIMUMAB [Suspect]
     Active Substance: GOLIMUMAB
     Dosage: UNK
  262. GOLIMUMAB [Suspect]
     Active Substance: GOLIMUMAB
     Dosage: 1 G
  263. INFLIXIMAB [Suspect]
     Active Substance: INFLIXIMAB
     Indication: Rheumatoid arthritis
     Dosage: UNK
  264. INFLIXIMAB [Suspect]
     Active Substance: INFLIXIMAB
     Indication: Psoriatic arthropathy
     Dosage: 400 MG
  265. INFLIXIMAB [Suspect]
     Active Substance: INFLIXIMAB
     Dosage: 500 MG
  266. INFLIXIMAB [Suspect]
     Active Substance: INFLIXIMAB
     Dosage: UNK
  267. ISOPROPYL ALCOHOL [Suspect]
     Active Substance: ISOPROPYL ALCOHOL
     Indication: Product used for unknown indication
     Dosage: (DOSE FORM: LIQUID TOPICAL,  ROA: TOPICAL)
  268. LYRICA [Suspect]
     Active Substance: PREGABALIN
     Indication: Product used for unknown indication
     Dosage: UNK
  269. PREDNISONE [Suspect]
     Active Substance: PREDNISONE
     Indication: Product used for unknown indication
     Dosage: UNK
  270. PREDNISONE [Suspect]
     Active Substance: PREDNISONE
     Dosage: UNK
  271. PREDNISONE [Suspect]
     Active Substance: PREDNISONE
     Dosage: 1 MG
  272. PREDNISONE [Suspect]
     Active Substance: PREDNISONE
     Dosage: 25 MG
  273. PREDNISONE [Suspect]
     Active Substance: PREDNISONE
     Dosage: 5 MG
  274. PREDNISONE [Suspect]
     Active Substance: PREDNISONE
     Dosage: 10 MG
  275. PREDNISONE [Suspect]
     Active Substance: PREDNISONE
     Dosage: 5 MG
  276. PREDNISONE [Suspect]
     Active Substance: PREDNISONE
     Dosage: 40 MG
  277. PREDNISONE [Suspect]
     Active Substance: PREDNISONE
     Dosage: UNK
  278. PREDNISONE [Suspect]
     Active Substance: PREDNISONE
     Dosage: UNK
  279. PREDNISONE [Suspect]
     Active Substance: PREDNISONE
     Dosage: UNK
  280. PREDNISONE [Suspect]
     Active Substance: PREDNISONE
     Dosage: UNK
  281. PREDNISONE [Suspect]
     Active Substance: PREDNISONE
     Dosage: UNK
  282. PREDNISONE [Suspect]
     Active Substance: PREDNISONE
     Dosage: UNK
  283. PREDNISONE [Suspect]
     Active Substance: PREDNISONE
     Dosage: 1000 MG
  284. PREDNISONE [Suspect]
     Active Substance: PREDNISONE
     Dosage: 200 MG
  285. PREDNISONE [Suspect]
     Active Substance: PREDNISONE
     Dosage: 2000 MG
  286. PREDNISONE [Suspect]
     Active Substance: PREDNISONE
     Dosage: 7.5 MG, QD
  287. PREDNISONE [Suspect]
     Active Substance: PREDNISONE
     Dosage: 7.5 MG, QD
  288. PREDNISONE [Suspect]
     Active Substance: PREDNISONE
     Dosage: UNK
  289. PSEUDOEPHEDRINE HYDROCHLORIDE [Suspect]
     Active Substance: PSEUDOEPHEDRINE HYDROCHLORIDE
     Indication: Rheumatoid arthritis
     Dosage: 10 MG
  290. PSEUDOEPHEDRINE HYDROCHLORIDE [Suspect]
     Active Substance: PSEUDOEPHEDRINE HYDROCHLORIDE
     Indication: Product used for unknown indication
     Dosage: 25 MG
  291. CETIRIZINE HYDROCHLORIDE [Suspect]
     Active Substance: CETIRIZINE HYDROCHLORIDE
     Indication: Rheumatoid arthritis
     Dosage: UNK
  292. CETIRIZINE HYDROCHLORIDE [Suspect]
     Active Substance: CETIRIZINE HYDROCHLORIDE
     Indication: Urticaria
     Dosage: 10 MG
  293. CETIRIZINE HYDROCHLORIDE [Suspect]
     Active Substance: CETIRIZINE HYDROCHLORIDE
     Dosage: 25 MG
  294. CETIRIZINE HYDROCHLORIDE [Suspect]
     Active Substance: CETIRIZINE HYDROCHLORIDE
     Dosage: 25 MG
  295. CETIRIZINE HYDROCHLORIDE [Suspect]
     Active Substance: CETIRIZINE HYDROCHLORIDE
     Dosage: UNK
  296. CETIRIZINE HYDROCHLORIDE [Suspect]
     Active Substance: CETIRIZINE HYDROCHLORIDE
     Dosage: 10 MG
  297. CETIRIZINE HYDROCHLORIDE\PSEUDOEPHEDRINE HYDROCHLORIDE [Suspect]
     Active Substance: CETIRIZINE HYDROCHLORIDE\PSEUDOEPHEDRINE HYDROCHLORIDE
     Indication: Rheumatoid arthritis
     Dosage: 10 MG
  298. CETIRIZINE HYDROCHLORIDE\PSEUDOEPHEDRINE HYDROCHLORIDE [Suspect]
     Active Substance: CETIRIZINE HYDROCHLORIDE\PSEUDOEPHEDRINE HYDROCHLORIDE
     Dosage: 10 MG
  299. CETIRIZINE HYDROCHLORIDE\PSEUDOEPHEDRINE HYDROCHLORIDE [Suspect]
     Active Substance: CETIRIZINE HYDROCHLORIDE\PSEUDOEPHEDRINE HYDROCHLORIDE
     Dosage: UNK
  300. CETIRIZINE HYDROCHLORIDE\PSEUDOEPHEDRINE HYDROCHLORIDE [Suspect]
     Active Substance: CETIRIZINE HYDROCHLORIDE\PSEUDOEPHEDRINE HYDROCHLORIDE
     Dosage: 25 MG (TABLET (EXTENDED- RELEASE)
  301. REMICADE [Suspect]
     Active Substance: INFLIXIMAB
     Indication: Product used for unknown indication
     Dosage: UNK
  302. REMICADE [Suspect]
     Active Substance: INFLIXIMAB
     Dosage: UNK
  303. REMICADE [Suspect]
     Active Substance: INFLIXIMAB
     Dosage: 400 MG
  304. REMICADE [Suspect]
     Active Substance: INFLIXIMAB
     Dosage: 400 MG
  305. REMICADE [Suspect]
     Active Substance: INFLIXIMAB
     Dosage: 5 MG, QD
  306. REMICADE [Suspect]
     Active Substance: INFLIXIMAB
     Dosage: 40 MG, QD
  307. REMICADE [Suspect]
     Active Substance: INFLIXIMAB
     Dosage: 400 MG, QD
  308. REMICADE [Suspect]
     Active Substance: INFLIXIMAB
     Dosage: 400 MG, QD
  309. REMICADE [Suspect]
     Active Substance: INFLIXIMAB
     Dosage: 200 MG, QD
  310. REMICADE [Suspect]
     Active Substance: INFLIXIMAB
     Dosage: UNK
  311. REMICADE [Suspect]
     Active Substance: INFLIXIMAB
     Dosage: 500 MG
  312. REMICADE [Suspect]
     Active Substance: INFLIXIMAB
     Dosage: UNK
  313. REMICADE [Suspect]
     Active Substance: INFLIXIMAB
     Dosage: UNK
  314. REMICADE [Suspect]
     Active Substance: INFLIXIMAB
     Dosage: UNK
  315. REMICADE [Suspect]
     Active Substance: INFLIXIMAB
     Dosage: UNK
  316. REMICADE [Suspect]
     Active Substance: INFLIXIMAB
     Dosage: 400 MG
  317. REMICADE [Suspect]
     Active Substance: INFLIXIMAB
     Dosage: 400 MG, QD
  318. REMICADE [Suspect]
     Active Substance: INFLIXIMAB
     Indication: Product used for unknown indication
     Dosage: (DOSE FORM: POWDER FOR  SOLUTION INTRAVENOUS)
  319. SIMPONI [Suspect]
     Active Substance: GOLIMUMAB
     Indication: Psoriatic arthropathy
     Dosage: UNK
  320. SIMPONI [Suspect]
     Active Substance: GOLIMUMAB
     Indication: Rheumatoid arthritis
     Dosage: 50 MG
  321. SIMPONI [Suspect]
     Active Substance: GOLIMUMAB
     Dosage: UNK (DOSE FORM: SOLUTION SUBCUTANEOUS)
  322. STELARA [Suspect]
     Active Substance: USTEKINUMAB
     Indication: Rheumatoid arthritis
  323. STELARA [Suspect]
     Active Substance: USTEKINUMAB
  324. STELARA [Suspect]
     Active Substance: USTEKINUMAB
     Dosage: 45 MG
  325. STELARA [Suspect]
     Active Substance: USTEKINUMAB
     Dosage: 45 MG
  326. STELARA [Suspect]
     Active Substance: USTEKINUMAB
     Dosage: UNK (SOLUTION SUBCUTANEOUS)
  327. SULFAMETHOXAZOLE\TRIMETHOPRIM [Suspect]
     Active Substance: SULFAMETHOXAZOLE\TRIMETHOPRIM
     Indication: Product used for unknown indication
     Dosage: UNK
  328. SULFAMETHOXAZOLE\TRIMETHOPRIM [Suspect]
     Active Substance: SULFAMETHOXAZOLE\TRIMETHOPRIM
     Dosage: UNK
  329. SULFAMETHOXAZOLE\TRIMETHOPRIM [Suspect]
     Active Substance: SULFAMETHOXAZOLE\TRIMETHOPRIM
     Dosage: 400 MG
  330. SULFAMETHOXAZOLE\TRIMETHOPRIM [Suspect]
     Active Substance: SULFAMETHOXAZOLE\TRIMETHOPRIM
     Dosage: 1000 MG
  331. SULFAMETHOXAZOLE\TRIMETHOPRIM [Suspect]
     Active Substance: SULFAMETHOXAZOLE\TRIMETHOPRIM
     Dosage: UNK
  332. SULFAMETHOXAZOLE\TRIMETHOPRIM [Suspect]
     Active Substance: SULFAMETHOXAZOLE\TRIMETHOPRIM
     Dosage: UNK
  333. SULFAMETHOXAZOLE\TRIMETHOPRIM [Suspect]
     Active Substance: SULFAMETHOXAZOLE\TRIMETHOPRIM
     Dosage: UNK
  334. SULFAMETHOXAZOLE\TRIMETHOPRIM [Suspect]
     Active Substance: SULFAMETHOXAZOLE\TRIMETHOPRIM
     Dosage: UNK
  335. SULFAMETHOXAZOLE\TRIMETHOPRIM [Suspect]
     Active Substance: SULFAMETHOXAZOLE\TRIMETHOPRIM
     Dosage: 500 MG
  336. SULFAMETHOXAZOLE\TRIMETHOPRIM [Suspect]
     Active Substance: SULFAMETHOXAZOLE\TRIMETHOPRIM
     Dosage: 1000 MG
  337. SULFAMETHOXAZOLE\TRIMETHOPRIM [Suspect]
     Active Substance: SULFAMETHOXAZOLE\TRIMETHOPRIM
     Dosage: 2000 MG
  338. SULFAMETHOXAZOLE\TRIMETHOPRIM [Suspect]
     Active Substance: SULFAMETHOXAZOLE\TRIMETHOPRIM
     Dosage: 1000 MG
  339. SULFAMETHOXAZOLE\TRIMETHOPRIM [Suspect]
     Active Substance: SULFAMETHOXAZOLE\TRIMETHOPRIM
     Dosage: 2000 MG, QD
  340. SULFASALAZINE [Suspect]
     Active Substance: SULFASALAZINE
     Indication: Rheumatoid arthritis
     Dosage: 1 DOSAGE FORM
  341. SULFASALAZINE [Suspect]
     Active Substance: SULFASALAZINE
     Dosage: 1000 MG
  342. SULFASALAZINE [Suspect]
     Active Substance: SULFASALAZINE
     Dosage: 2000 MG
  343. SULFASALAZINE [Suspect]
     Active Substance: SULFASALAZINE
     Dosage: 1000 MG
  344. SULFASALAZINE [Suspect]
     Active Substance: SULFASALAZINE
     Dosage: 4000 MG
  345. SULFASALAZINE [Suspect]
     Active Substance: SULFASALAZINE
     Dosage: 500 MG
  346. SULFASALAZINE [Suspect]
     Active Substance: SULFASALAZINE
     Dosage: 2 G, QD
  347. SULFASALAZINE [Suspect]
     Active Substance: SULFASALAZINE
     Dosage: 2000 MG, QD
  348. SULFASALAZINE [Suspect]
     Active Substance: SULFASALAZINE
     Dosage: 1000 MG, QD
  349. SULFASALAZINE [Suspect]
     Active Substance: SULFASALAZINE
     Dosage: 2000 MG, QD
  350. SULFASALAZINE [Suspect]
     Active Substance: SULFASALAZINE
     Dosage: 2 G, QD
  351. SULFASALAZINE [Suspect]
     Active Substance: SULFASALAZINE
     Dosage: 1 DOSAGE FORM, QD
  352. SULFASALAZINE [Suspect]
     Active Substance: SULFASALAZINE
     Dosage: 1 G, QD
  353. SULFASALAZINE [Suspect]
     Active Substance: SULFASALAZINE
     Dosage: 2 G, QD
  354. SULFASALAZINE [Suspect]
     Active Substance: SULFASALAZINE
     Dosage: 1000 G, QD
  355. SULFASALAZINE [Suspect]
     Active Substance: SULFASALAZINE
     Dosage: UNK
  356. SULFATRIM [Suspect]
     Active Substance: SULFAMETHOXAZOLE\TRIMETHOPRIM
     Indication: Product used for unknown indication
     Dosage: UNK
  357. VITAMIN D3 [Suspect]
     Active Substance: CHOLECALCIFEROL
     Indication: Rheumatoid arthritis
     Dosage: UNK
  358. PREDNISONE [Suspect]
     Active Substance: PREDNISONE
     Indication: Rheumatoid arthritis
     Dosage: UNK
  359. XELJANZ [Suspect]
     Active Substance: TOFACITINIB CITRATE
     Indication: Product used for unknown indication
     Dosage: UNK
  360. XELJANZ [Suspect]
     Active Substance: TOFACITINIB CITRATE
     Dosage: 10 MG
  361. XELJANZ [Suspect]
     Active Substance: TOFACITINIB CITRATE
     Dosage: 10 MG
  362. XELJANZ [Suspect]
     Active Substance: TOFACITINIB CITRATE
     Dosage: 10 MG, QD
  363. ACETAMINOPHEN [Suspect]
     Active Substance: ACETAMINOPHEN
     Indication: Pyrexia
     Dosage: UNK
  364. ACETAMINOPHEN [Suspect]
     Active Substance: ACETAMINOPHEN
     Indication: Pain
     Dosage: UNK
  365. ACETAMINOPHEN [Suspect]
     Active Substance: ACETAMINOPHEN
     Indication: Rheumatoid arthritis
     Dosage: 10 MG
  366. ACTEMRA [Suspect]
     Active Substance: TOCILIZUMAB
     Indication: Rheumatoid arthritis
     Dosage: 752 MG
  367. ACTEMRA [Suspect]
     Active Substance: TOCILIZUMAB
     Dosage: UNK
  368. ACTEMRA [Suspect]
     Active Substance: TOCILIZUMAB
     Dosage: 20 MG
  369. ACTEMRA [Suspect]
     Active Substance: TOCILIZUMAB
     Dosage: UNK
  370. ACTEMRA [Suspect]
     Active Substance: TOCILIZUMAB
     Dosage: 728 MG
  371. ACTEMRA [Suspect]
     Active Substance: TOCILIZUMAB
     Dosage: 1 DOSAGE FORM, QW
  372. ACTEMRA [Suspect]
     Active Substance: TOCILIZUMAB
     Dosage: 2912 MG, QW
  373. ACTEMRA [Suspect]
     Active Substance: TOCILIZUMAB
     Dosage: 3011 MG
  374. ACTEMRA [Suspect]
     Active Substance: TOCILIZUMAB
     Dosage: 1 DOSAGE FORM, QW
  375. ACTEMRA [Suspect]
     Active Substance: TOCILIZUMAB
     Dosage: 3011.2 MG, QW
  376. ACTEMRA [Suspect]
     Active Substance: TOCILIZUMAB
     Dosage: UNK
  377. ACTEMRA [Suspect]
     Active Substance: TOCILIZUMAB
     Dosage: UNK
  378. ACTEMRA [Suspect]
     Active Substance: TOCILIZUMAB
     Dosage: UNK (ROA: TOPICAL)
  379. ACTEMRA [Suspect]
     Active Substance: TOCILIZUMAB
     Dosage: UNK
  380. CORTISONE [Suspect]
     Active Substance: CORTISONE
     Indication: Rheumatoid arthritis
     Dosage: 25 MG
  381. CORTISONE [Suspect]
     Active Substance: CORTISONE
     Dosage: 50 MG
  382. CORTISONE [Suspect]
     Active Substance: CORTISONE
     Dosage: 250 MG
  383. CORTISONE [Suspect]
     Active Substance: CORTISONE
     Dosage: 250 MG
  384. CORTISONE [Suspect]
     Active Substance: CORTISONE
     Dosage: UNK
  385. CORTISONE [Suspect]
     Active Substance: CORTISONE
     Dosage: UNK
  386. HUMIRA [Suspect]
     Active Substance: ADALIMUMAB
     Indication: Psoriatic arthropathy
     Dosage: 4 MG
  387. HUMIRA [Suspect]
     Active Substance: ADALIMUMAB
     Indication: Rheumatoid arthritis
     Dosage: 40 MG
  388. HUMIRA [Suspect]
     Active Substance: ADALIMUMAB
     Dosage: 400 MG
  389. HUMIRA [Suspect]
     Active Substance: ADALIMUMAB
     Dosage: 400 MG
  390. HUMIRA [Suspect]
     Active Substance: ADALIMUMAB
     Dosage: 400 MG
  391. HUMIRA [Suspect]
     Active Substance: ADALIMUMAB
     Dosage: UNK (DOSE FORM: SOLUTION  SUBCUTANEOUS)
  392. HYDROCORTISONE BUTYRATE [Suspect]
     Active Substance: HYDROCORTISONE BUTYRATE
     Indication: Product used for unknown indication
     Dosage: UNK
  393. HYDROCORTISONE SODIUM SUCCINATE [Suspect]
     Active Substance: HYDROCORTISONE SODIUM SUCCINATE
     Indication: Product used for unknown indication
     Dosage: 25 MG
  394. HYDROCORTISONE SODIUM SUCCINATE [Suspect]
     Active Substance: HYDROCORTISONE SODIUM SUCCINATE
     Dosage: 25 MG (ROA: TOPICAL)
  395. HYDROCORTISONE SODIUM SUCCINATE [Suspect]
     Active Substance: HYDROCORTISONE SODIUM SUCCINATE
     Dosage: UNK
  396. HYDROCORTISONE SODIUM SUCCINATE [Suspect]
     Active Substance: HYDROCORTISONE SODIUM SUCCINATE
     Dosage: UNK
  397. HYDROCORTISONE SODIUM SUCCINATE [Suspect]
     Active Substance: HYDROCORTISONE SODIUM SUCCINATE
     Dosage: UNK
  398. HYDROCORTISONE SODIUM SUCCINATE [Suspect]
     Active Substance: HYDROCORTISONE SODIUM SUCCINATE
     Dosage: UNK
  399. HYDROCORTISONE SODIUM SUCCINATE [Suspect]
     Active Substance: HYDROCORTISONE SODIUM SUCCINATE
     Dosage: UNK
  400. HYDROCORTISONE SODIUM SUCCINATE [Suspect]
     Active Substance: HYDROCORTISONE SODIUM SUCCINATE
     Indication: Product used for unknown indication
     Dosage: UNK (ROA: POWDER FOR SOLUTION)
  401. HYDROXYCHLOROQUINE [Suspect]
     Active Substance: HYDROXYCHLOROQUINE
     Indication: Product used for unknown indication
     Dosage: UNK
  402. NAPROXEN SODIUM [Suspect]
     Active Substance: NAPROXEN SODIUM
     Indication: Rheumatoid arthritis
     Dosage: 500 MG
  403. NAPROXEN SODIUM [Suspect]
     Active Substance: NAPROXEN SODIUM
     Dosage: 1000 MG, QD
  404. ORENCIA [Suspect]
     Active Substance: ABATACEPT
     Indication: Rheumatoid arthritis
  405. ORENCIA [Suspect]
     Active Substance: ABATACEPT
     Indication: Psoriatic arthropathy
     Dosage: 25 MG
  406. ORENCIA [Suspect]
     Active Substance: ABATACEPT
     Dosage: 125 MG
  407. ORENCIA [Suspect]
     Active Substance: ABATACEPT
     Dosage: 125 MG, QD
  408. ORENCIA [Suspect]
     Active Substance: ABATACEPT
     Dosage: 18 MG, QD
  409. ORENCIA [Suspect]
     Active Substance: ABATACEPT
     Dosage: 120 MG, QD
  410. ORENCIA [Suspect]
     Active Substance: ABATACEPT
     Dosage: UNK
  411. ORENCIA [Suspect]
     Active Substance: ABATACEPT
     Dosage: 125 MG
  412. ORENCIA [Suspect]
     Active Substance: ABATACEPT
     Dosage: UNK
  413. ORENCIA [Suspect]
     Active Substance: ABATACEPT
     Dosage: 17.857 MG, QD
  414. ORENCIA [Suspect]
     Active Substance: ABATACEPT
     Dosage: 6 MG, QD
  415. ORENCIA [Suspect]
     Active Substance: ABATACEPT
     Dosage: 5 MG, QD
  416. ORENCIA [Suspect]
     Active Substance: ABATACEPT
     Dosage: 17.857 MG, QD
  417. ORENCIA [Suspect]
     Active Substance: ABATACEPT
     Dosage: UNK
  418. OTEZLA [Suspect]
     Active Substance: APREMILAST
     Indication: Product used for unknown indication
     Dosage: 3 MG
  419. OTEZLA [Suspect]
     Active Substance: APREMILAST
     Dosage: 6 MG, QD
  420. OXYCODONE TEREPHTHALATE [Suspect]
     Active Substance: OXYCODONE TEREPHTHALATE
     Indication: Product used for unknown indication
     Dosage: UNK
  421. OXYCODONE TEREPHTHALATE [Suspect]
     Active Substance: OXYCODONE TEREPHTHALATE
     Dosage: UNK
  422. PERIOGARD [Suspect]
     Active Substance: CHLORHEXIDINE GLUCONATE
     Indication: Product used for unknown indication
     Dosage: UNK
  423. PERIOGARD [Suspect]
     Active Substance: CHLORHEXIDINE GLUCONATE
     Dosage: UNK
  424. PERIOGARD [Suspect]
     Active Substance: CHLORHEXIDINE GLUCONATE
     Dosage: UNK
  425. PHTHALYLSULFATHIAZOLE [Suspect]
     Active Substance: PHTHALYLSULFATHIAZOLE
     Indication: Product used for unknown indication
     Dosage: UNK
  426. SULFAMETHOXAZOLE [Suspect]
     Active Substance: SULFAMETHOXAZOLE
     Indication: Product used for unknown indication
     Dosage: UNK
  427. SULFAMETHOXAZOLE [Suspect]
     Active Substance: SULFAMETHOXAZOLE
     Dosage: UNK
  428. SULFAMETHOXAZOLE [Suspect]
     Active Substance: SULFAMETHOXAZOLE
     Dosage: UNK
  429. SULFAMETHOXAZOLE [Suspect]
     Active Substance: SULFAMETHOXAZOLE
     Dosage: UNK

REACTIONS (19)
  - Duodenal ulcer perforation [Fatal]
  - Confusional state [Fatal]
  - Fatigue [Fatal]
  - Folliculitis [Fatal]
  - Gastrointestinal disorder [Fatal]
  - Hand deformity [Fatal]
  - Infection [Fatal]
  - Infusion related reaction [Fatal]
  - Irritable bowel syndrome [Fatal]
  - Lower respiratory tract infection [Fatal]
  - Muscle injury [Fatal]
  - Nasopharyngitis [Fatal]
  - Pain [Fatal]
  - Pemphigus [Fatal]
  - Pyrexia [Fatal]
  - Anti-cyclic citrullinated peptide antibody positive [Fatal]
  - Glossodynia [Fatal]
  - Helicobacter infection [Fatal]
  - Pericarditis [Fatal]
